FAERS Safety Report 22993181 (Version 3)
Quarter: 2023Q4

REPORT INFORMATION
  Report Type: Spontaneous
  Country: US (occurrence: US)
  Receive Date: 20230927
  Receipt Date: 20231013
  Transmission Date: 20240110
  Serious: Yes (Hospitalization, Other)
  Sender: FDA-Public Use
  Company Number: US-SA-SAC20230829000550

PATIENT
  Age: 65 Year
  Sex: Male
  Weight: 111.13 kg

DRUGS (22)
  1. DUPIXENT [Suspect]
     Active Substance: DUPILUMAB
     Indication: Eosinophilic oesophagitis
     Dosage: 300 MG, QW
     Route: 058
     Dates: start: 20220915
  2. EPIPEN [Concomitant]
     Active Substance: EPINEPHRINE
     Dosage: UNK
  3. NASACORT [Concomitant]
     Active Substance: TRIAMCINOLONE ACETONIDE
     Dosage: NASACORT 55 MCG SPRAY
  4. CLEAR EYES NATURAL TEARS [Concomitant]
     Active Substance: POLYVINYL ALCOHOL\POVIDONE
     Dosage: UNK
  5. VISINE TEARS DRY EYE RELIEF [Concomitant]
     Active Substance: GLYCERIN\HYPROMELLOSES\POLYETHYLENE GLYCOL 400
     Dosage: UNK
  6. TYLENOL ARTHRITIS PAIN [Concomitant]
     Active Substance: ACETAMINOPHEN
     Dosage: UNK
  7. VITAMIN C [Concomitant]
     Active Substance: ASCORBIC ACID
     Dosage: UNK
  8. MAGNESIUM [Concomitant]
     Active Substance: MAGNESIUM
     Dosage: UNK
  9. VITAMIN D3 [Concomitant]
     Active Substance: CHOLECALCIFEROL
     Dosage: VITAMIN D3 125 MCG
  10. ASPIRIN [Concomitant]
     Active Substance: ASPIRIN
     Dosage: UNK
  11. ATORVASTATIN CALCIUM [Concomitant]
     Active Substance: ATORVASTATIN CALCIUM
     Dosage: UNK
  12. ALLOPURINOL [Concomitant]
     Active Substance: ALLOPURINOL
     Dosage: UNK
  13. PANTOPRAZOLE SODIUM [Concomitant]
     Active Substance: PANTOPRAZOLE SODIUM
     Dosage: UNK
  14. METOPROLOL TARTRATE [Concomitant]
     Active Substance: METOPROLOL TARTRATE
     Dosage: UNK
  15. ZYRTEC [Concomitant]
     Active Substance: CETIRIZINE HYDROCHLORIDE
     Dosage: UNK
  16. FAMOTIDINE [Concomitant]
     Active Substance: FAMOTIDINE
     Dosage: UNK
  17. FLOVENT HFA [Concomitant]
     Active Substance: FLUTICASONE PROPIONATE
     Dosage: FLOVENT HFA 110 MCG AER W/ADAP
  18. BUDESONIDE [Concomitant]
     Active Substance: BUDESONIDE
     Dosage: BUDESONIDE 0.5 MG/2ML AMPUL-NEB
  19. AVEENO [Concomitant]
     Active Substance: DIMETHICONE\HOMOSALATE\OCTINOXATE\OCTISALATE\TITANIUM DIOXIDE
     Dosage: UNK
  20. ZINC [Concomitant]
     Active Substance: ZINC
     Dosage: UNK
  21. COENZYME Q10 [Concomitant]
     Active Substance: DIETARY SUPPLEMENT\UBIDECARENONE
     Dosage: UNK
  22. OMEGA-3 FATTY ACIDS [Concomitant]
     Active Substance: OMEGA-3 FATTY ACIDS
     Dosage: OMEGA-3 2100 1050-1200

REACTIONS (4)
  - Atrial fibrillation [Unknown]
  - Cardiac operation [Unknown]
  - Malaise [Unknown]
  - Speech disorder [Unknown]

NARRATIVE: CASE EVENT DATE: 20230825
